FAERS Safety Report 18995386 (Version 1)
Quarter: 2021Q1

REPORT INFORMATION
  Report Type: Spontaneous
  Country: US (occurrence: US)
  Receive Date: 20210311
  Receipt Date: 20210311
  Transmission Date: 20210420
  Serious: Yes (Other)
  Sender: FDA-Public Use
  Company Number: US-DECIPHERA PHARMACEUTICALS LLC-2020-US-000774

PATIENT

DRUGS (2)
  1. QINLOCK [Suspect]
     Active Substance: RIPRETINIB
     Indication: PRODUCT USED FOR UNKNOWN INDICATION
     Dosage: 150 MILLIGRAM, QD
     Route: 048
  2. QINLOCK [Suspect]
     Active Substance: RIPRETINIB
     Dosage: 150 MILLIGRAM, BID
     Route: 048

REACTIONS (12)
  - Palmar-plantar erythrodysaesthesia syndrome [Unknown]
  - Skin papilloma [Unknown]
  - Alopecia [Unknown]
  - Fatigue [Unknown]
  - Muscle spasms [Unknown]
  - Neoplasm progression [Unknown]
  - Drug ineffective [Unknown]
  - Skin atrophy [Unknown]
  - Overdose [Unknown]
  - Squamous cell carcinoma [Unknown]
  - Nausea [Unknown]
  - Malignant melanoma in situ [Unknown]
